FAERS Safety Report 13681070 (Version 1)
Quarter: 2017Q2

REPORT INFORMATION
  Report Type: Spontaneous
  Country: US (occurrence: US)
  Receive Date: 20170623
  Receipt Date: 20170623
  Transmission Date: 20170830
  Serious: Yes (Hospitalization)
  Sender: FDA-Public Use
  Company Number: US-ALVOGEN-2017-ALVOGEN-092420

PATIENT
  Age: 94 Year
  Sex: Male
  Weight: 69.8 kg

DRUGS (9)
  1. LASIX [Suspect]
     Active Substance: FUROSEMIDE
     Indication: CARDIAC DISORDER
     Dates: end: 201701
  2. PRURITANS PRIDE ODORLESS GARLIC [Suspect]
     Active Substance: GARLIC
     Indication: SUPPLEMENTATION THERAPY
     Route: 048
     Dates: end: 201701
  3. IBUPROFEN. [Suspect]
     Active Substance: IBUPROFEN
     Indication: PRODUCT USED FOR UNKNOWN INDICATION
     Dates: end: 201701
  4. PURITANS PRIDE NATURAL PINEAPPLE ENZYME BROMELAIN [Suspect]
     Active Substance: DIETARY SUPPLEMENT
     Indication: SUPPLEMENTATION THERAPY
     Dosage: PURITANS PRIDE NATURAL PINEAPPLE ENZVME BROMELAIN 500 MG 300 GDU
     Route: 048
     Dates: end: 201701
  5. COUMADIN [Suspect]
     Active Substance: WARFARIN SODIUM
     Indication: CARDIAC DISORDER
     Dates: end: 201701
  6. DHEA [Suspect]
     Active Substance: PRASTERONE
     Indication: SUPPLEMENTATION THERAPY
     Route: 048
     Dates: end: 201701
  7. ATENOLOL. [Suspect]
     Active Substance: ATENOLOL
     Indication: CARDIAC DISORDER
     Dates: end: 201701
  8. PURITANS PRIDE FISH OIL [Suspect]
     Active Substance: FISH OIL
     Indication: SUPPLEMENTATION THERAPY
     Dosage: RAPID RELEASE SOFT GELS
     Route: 048
     Dates: end: 201701
  9. PURITANS PRIDE NIACINAMIDE [Suspect]
     Active Substance: NIACINAMIDE
     Indication: SUPPLEMENTATION THERAPY
     Route: 048
     Dates: end: 201701

REACTIONS (3)
  - Cardiac failure congestive [Unknown]
  - Renal failure [Unknown]
  - Diabetes mellitus [Unknown]

NARRATIVE: CASE EVENT DATE: 201610
